FAERS Safety Report 8797681 (Version 2)
Quarter: 2015Q2

REPORT INFORMATION
  Report Type: Report from Study
  Country: US (occurrence: US)
  Receive Date: 20120919
  Receipt Date: 20150626
  Transmission Date: 20150821
  Serious: Yes (Death)
  Sender: FDA-Public Use
  Company Number: US-ROCHE-1129459

PATIENT
  Age: 59 Year
  Sex: Female
  Weight: 51 kg

DRUGS (9)
  1. PROZAC [Concomitant]
     Active Substance: FLUOXETINE HYDROCHLORIDE
     Route: 065
  2. CYTOXAN [Concomitant]
     Active Substance: CYCLOPHOSPHAMIDE
     Route: 048
  3. AVASTIN [Suspect]
     Active Substance: BEVACIZUMAB
     Route: 042
  4. METHOTREXATE [Concomitant]
     Active Substance: METHOTREXATE
     Route: 048
  5. ZOMETA [Concomitant]
     Active Substance: ZOLEDRONIC ACID
  6. AVASTIN [Suspect]
     Active Substance: BEVACIZUMAB
     Indication: BREAST CANCER FEMALE
     Route: 042
     Dates: start: 20050930
  7. AVASTIN [Suspect]
     Active Substance: BEVACIZUMAB
     Route: 042
     Dates: start: 200510
  8. ABRAXANE [Concomitant]
     Active Substance: PACLITAXEL
     Indication: BREAST CANCER FEMALE
     Route: 042
  9. FASLODEX [Concomitant]
     Active Substance: FULVESTRANT
     Route: 030

REACTIONS (11)
  - Off label use [Unknown]
  - Lacrimation increased [Unknown]
  - Depression [Unknown]
  - Irritability [Unknown]
  - Distractibility [Unknown]
  - Decreased appetite [Unknown]
  - Metastases to bone [Unknown]
  - Malaise [Unknown]
  - Somnolence [Unknown]
  - Death [Fatal]
  - Dysphagia [Unknown]

NARRATIVE: CASE EVENT DATE: 200602
